FAERS Safety Report 6161117-7 (Version None)
Quarter: 2009Q2

REPORT INFORMATION
  Report Type: 
  Country: None (occurrence: None)
  Receive Date: 20090417
  Receipt Date: 20090417
  Transmission Date: 20091009
  Serious: No
  Sender: FDA-Public Use
  Company Number: None

PATIENT
  Age: 71 Year
  Sex: Female
  Weight: 66.6788 kg

DRUGS (1)
  1. CARBAMAZEPINE [Suspect]
     Indication: TRIGEMINAL NEURALGIA
     Dosage: 100 MG 1 TAB TWICE DAY
     Dates: start: 20081029

REACTIONS (3)
  - RASH GENERALISED [None]
  - RASH PRURITIC [None]
  - SLEEP DISORDER [None]
